FAERS Safety Report 9617309 (Version 5)
Quarter: 2014Q1

REPORT INFORMATION
  Report Type: Report from Study
  Country: IE (occurrence: IE)
  Receive Date: 20131011
  Receipt Date: 20140116
  Transmission Date: 20141002
  Serious: Yes (Hospitalization)
  Sender: FDA-Public Use
  Company Number: IE-US-EMD SERONO, INC.-7239622

PATIENT
  Sex: Female

DRUGS (2)
  1. SAIZEN [Suspect]
     Indication: PITUITARY TUMOUR
     Route: 058
     Dates: start: 20130820
  2. AMITRIPTYLINE [Concomitant]
     Indication: PRODUCT USED FOR UNKNOWN INDICATION

REACTIONS (1)
  - Skin ulcer [Recovered/Resolved]
